FAERS Safety Report 16927180 (Version 1)
Quarter: 2019Q4

REPORT INFORMATION
  Report Type: Spontaneous
  Country: US (occurrence: US)
  Receive Date: 20191016
  Receipt Date: 20191016
  Transmission Date: 20200122
  Serious: No
  Sender: FDA-Public Use
  Company Number: US-009507513-1909USA014513

PATIENT
  Age: 66 Year
  Sex: Male

DRUGS (2)
  1. ROSUVASTATIN. [Concomitant]
     Active Substance: ROSUVASTATIN
     Indication: CARNITINE PALMITOYLTRANSFERASE DEFICIENCY
     Dosage: 5 MILLIGRAM EVERY MONDAY, WEDNESDAY AND THUESDAY
  2. ZETIA [Suspect]
     Active Substance: EZETIMIBE
     Indication: CARNITINE PALMITOYLTRANSFERASE DEFICIENCY
     Dosage: 10 MILLIGRAM, QD
     Route: 048

REACTIONS (1)
  - Product use in unapproved indication [Unknown]
